FAERS Safety Report 19382676 (Version 1)
Quarter: 2021Q2

REPORT INFORMATION
  Report Type: Spontaneous
  Country: US (occurrence: US)
  Receive Date: 20210607
  Receipt Date: 20210607
  Transmission Date: 20210717
  Serious: No
  Sender: FDA-Public Use
  Company Number: US-PFIZER INC-2021269982

PATIENT
  Age: 70 Year
  Sex: Female
  Weight: 78.47 kg

DRUGS (1)
  1. GABAPENTIN. [Suspect]
     Active Substance: GABAPENTIN
     Dosage: 100 MG, 2X/DAY

REACTIONS (5)
  - Off label use [Unknown]
  - Muscle spasms [Unknown]
  - Burning sensation [Unknown]
  - Hot flush [Unknown]
  - Product use issue [Unknown]
